FAERS Safety Report 18779959 (Version 1)
Quarter: 2021Q1

REPORT INFORMATION
  Report Type: Spontaneous
  Country: JP (occurrence: JP)
  Receive Date: 20210125
  Receipt Date: 20210125
  Transmission Date: 20210419
  Serious: Yes (Other)
  Sender: FDA-Public Use
  Company Number: JP-LUPIN PHARMACEUTICALS INC.-2021-00479

PATIENT
  Age: 84 Year
  Sex: Male

DRUGS (8)
  1. METHYLPREDNISOLONE. [Suspect]
     Active Substance: METHYLPREDNISOLONE
     Indication: COVID-19 PNEUMONIA
     Dosage: 500 MILLIGRAM, QD (IV STEROID PULSE THERAPY)
     Route: 065
  2. NAFAMOSTAT MESILATE [Suspect]
     Active Substance: NAFAMOSTAT MESYLATE
     Indication: COVID-19 PNEUMONIA
     Dosage: 20 MILLIGRAM, QD
     Route: 065
  3. METHYLPREDNISOLONE. [Suspect]
     Active Substance: METHYLPREDNISOLONE
     Indication: STEROID THERAPY
  4. CEFTRIAXONE. [Concomitant]
     Active Substance: CEFTRIAXONE
     Indication: ANTIBIOTIC THERAPY
     Dosage: UNK
     Route: 042
  5. CICLESONIDE [Suspect]
     Active Substance: CICLESONIDE
     Indication: COVID-19 PNEUMONIA
     Dosage: UNK
     Route: 065
  6. IMMUNOGLOBULIN [IMMUNOGLOBULINS NOS] [Suspect]
     Active Substance: IMMUNE GLOBULIN NOS
     Indication: COVID-19 PNEUMONIA
     Dosage: 5 GRAM, QD
     Route: 065
  7. FAVIPIRAVIR [Suspect]
     Active Substance: FAVIPIRAVIR
     Indication: COVID-19 PNEUMONIA
     Dosage: UNK
     Route: 065
  8. AZITHROMYCIN ANHYDROUS. [Concomitant]
     Active Substance: AZITHROMYCIN ANHYDROUS
     Indication: ANTIBIOTIC THERAPY
     Dosage: UNK
     Route: 048

REACTIONS (1)
  - Off label use [Unknown]
